FAERS Safety Report 13792023 (Version 1)
Quarter: 2017Q3

REPORT INFORMATION
  Report Type: Spontaneous
  Country: US (occurrence: US)
  Receive Date: 20170725
  Receipt Date: 20170725
  Transmission Date: 20171127
  Serious: No
  Sender: FDA-Public Use
  Company Number: US-ROCHE-1959856

PATIENT
  Sex: Male

DRUGS (6)
  1. NEXIUM [Concomitant]
     Active Substance: ESOMEPRAZOLE MAGNESIUM
  2. FLONASE [Concomitant]
     Active Substance: FLUTICASONE PROPIONATE
  3. BABY ASPIRIN [Concomitant]
     Active Substance: ASPIRIN
  4. ESBRIET [Suspect]
     Active Substance: PIRFENIDONE
     Indication: IDIOPATHIC PULMONARY FIBROSIS
     Dosage: TITRATION DOSE
     Route: 048
     Dates: start: 20170621
  5. ESBRIET [Suspect]
     Active Substance: PIRFENIDONE
     Dosage: 2 TABLETS THRICE A DAY
     Route: 048
  6. PRAVASTATIN. [Concomitant]
     Active Substance: PRAVASTATIN

REACTIONS (3)
  - Dyspnoea [Unknown]
  - Cough [Unknown]
  - Asthenia [Unknown]
